FAERS Safety Report 25736668 (Version 1)
Quarter: 2025Q3

REPORT INFORMATION
  Report Type: Spontaneous
  Country: US (occurrence: US)
  Receive Date: 20250828
  Receipt Date: 20250828
  Transmission Date: 20251020
  Serious: Yes (Other)
  Sender: SANOFI AVENTIS
  Company Number: US-SANOFI-02632043

PATIENT
  Sex: Female

DRUGS (1)
  1. DUPIXENT [Suspect]
     Active Substance: DUPILUMAB
     Indication: Pemphigoid
     Dosage: 300 MG, QOW

REACTIONS (4)
  - Systemic lupus erythematosus [Unknown]
  - Antinuclear antibody increased [Unknown]
  - Pemphigoid [Unknown]
  - Condition aggravated [Unknown]
